FAERS Safety Report 11450675 (Version 1)
Quarter: 2015Q3

REPORT INFORMATION
  Report Type: Spontaneous
  Country: US (occurrence: US)
  Receive Date: 20150903
  Receipt Date: 20150903
  Transmission Date: 20151125
  Serious: No
  Sender: FDA-Public Use
  Company Number: US-ROCHE-1009614

PATIENT
  Age: 56 Year
  Sex: Male

DRUGS (8)
  1. COPEGUS [Suspect]
     Active Substance: RIBAVIRIN
     Dosage: HALF DOSE RESTRARTED
     Route: 065
     Dates: start: 20110614
  2. PEGASYS [Suspect]
     Active Substance: PEGINTERFERON ALFA-2A
     Route: 065
     Dates: start: 20110413, end: 20110516
  3. PEGASYS [Suspect]
     Active Substance: PEGINTERFERON ALFA-2A
     Dosage: HALF DOSE RESTRARTED
     Route: 065
     Dates: start: 20110614
  4. COPEGUS [Suspect]
     Active Substance: RIBAVIRIN
     Indication: HEPATITIS C
     Route: 048
     Dates: start: 20110120
  5. COPEGUS [Suspect]
     Active Substance: RIBAVIRIN
     Route: 065
     Dates: end: 20110516
  6. PEGASYS [Suspect]
     Active Substance: PEGINTERFERON ALFA-2A
     Indication: HEPATITIS C
     Route: 058
     Dates: start: 20110120
  7. PEGASYS [Suspect]
     Active Substance: PEGINTERFERON ALFA-2A
     Dosage: FULL DOSE
     Route: 065
     Dates: start: 20110914
  8. COPEGUS [Suspect]
     Active Substance: RIBAVIRIN
     Dosage: FULL DOSE
     Route: 065
     Dates: start: 20110914

REACTIONS (1)
  - Anaemia [Unknown]

NARRATIVE: CASE EVENT DATE: 201105
